FAERS Safety Report 18881337 (Version 1)
Quarter: 2021Q1

REPORT INFORMATION
  Report Type: Spontaneous
  Country: US (occurrence: US)
  Receive Date: 20210212
  Receipt Date: 20210212
  Transmission Date: 20210420
  Serious: No
  Sender: FDA-Public Use
  Company Number: US-SA-2021SA038390

PATIENT
  Age: 47 Year
  Sex: Female

DRUGS (1)
  1. DUPIXENT [Suspect]
     Active Substance: DUPILUMAB
     Indication: DERMATITIS ATOPIC
     Dosage: 300 MG, QOW
     Dates: start: 202008

REACTIONS (6)
  - Skin haemorrhage [Unknown]
  - Rebound atopic dermatitis [Unknown]
  - Pain [Unknown]
  - Product dose omission issue [Unknown]
  - Product storage error [Unknown]
  - Pain in extremity [Unknown]
